FAERS Safety Report 19901294 (Version 1)
Quarter: 2021Q3

REPORT INFORMATION
  Report Type: Spontaneous
  Country: US (occurrence: US)
  Receive Date: 20210930
  Receipt Date: 20210930
  Transmission Date: 20211014
  Serious: Yes (Death)
  Sender: FDA-Public Use
  Company Number: US-PFIZER INC-2020383725

PATIENT
  Age: 79 Year
  Sex: Female

DRUGS (1)
  1. TORISEL [Suspect]
     Active Substance: TEMSIROLIMUS
     Indication: BRONCHIAL CARCINOMA
     Dosage: 25 MG

REACTIONS (2)
  - Off label use [Unknown]
  - Death [Fatal]
